FAERS Safety Report 4827509-0 (Version None)
Quarter: 2005Q4

REPORT INFORMATION
  Report Type: 
  Country: None (occurrence: None)
  Receive Date: 20051114
  Receipt Date: 20050606
  Transmission Date: 20060501
  Serious: Yes (Life-Threatening)
  Sender: FDA-Public Use
  Company Number: CA-BRISTOL-MYERS SQUIBB COMPANY-12995536

PATIENT
  Age: 78 Year
  Sex: Female
  Weight: 48 kg

DRUGS (3)
  1. CETUXIMAB [Suspect]
     Indication: COLORECTAL CANCER METASTATIC
     Dosage: INITIAL DOSE 592 MG ADMINSTERED ON 10-MAY-2005 F/B 370 MG WEEKLY.
     Route: 042
     Dates: start: 20050501, end: 20050501
  2. DALTEPARIN [Concomitant]
     Indication: THROMBOSIS
     Dates: start: 20041018
  3. LOMOTIL [Concomitant]
     Indication: DIARRHOEA
     Dates: start: 20030617

REACTIONS (1)
  - HYPOMAGNESAEMIA [None]
